FAERS Safety Report 17542055 (Version 2)
Quarter: 2020Q1

REPORT INFORMATION
  Report Type: Report from Study
  Country: US (occurrence: US)
  Receive Date: 20200313
  Receipt Date: 20200318
  Transmission Date: 20200409
  Serious: Yes (Hospitalization)
  Sender: FDA-Public Use
  Company Number: US-JNJFOC-20200309260

PATIENT
  Age: 18 Year
  Sex: Female
  Weight: 56.7 kg

DRUGS (26)
  1. AMPHOTERICIN B, LIPOSOME [Concomitant]
     Active Substance: AMPHOTERICIN B
  2. DEXLANSOPRAZOLE [Concomitant]
     Active Substance: DEXLANSOPRAZOLE
  3. INFLIXIMAB, RECOMBINANT [Suspect]
     Active Substance: INFLIXIMAB
     Indication: INFLAMMATORY BOWEL DISEASE
     Route: 042
     Dates: start: 20170424, end: 201903
  4. SERTRALINE [Concomitant]
     Active Substance: SERTRALINE HYDROCHLORIDE
  5. DICYCLOMINE                        /00068601/ [Concomitant]
     Active Substance: DICYCLOMINE HYDROCHLORIDE
  6. MAGNESIUM OXIDE. [Concomitant]
     Active Substance: MAGNESIUM OXIDE
  7. MELATONIN [Concomitant]
     Active Substance: MELATONIN
  8. RIFAXIMIN. [Concomitant]
     Active Substance: RIFAXIMIN
  9. MOMETASONE [Concomitant]
     Active Substance: MOMETASONE
  10. POTASSIUM CHLORIDE. [Concomitant]
     Active Substance: POTASSIUM CHLORIDE
  11. CELECOXIB. [Concomitant]
     Active Substance: CELECOXIB
  12. ONDANSETRON [Concomitant]
     Active Substance: ONDANSETRON
  13. VERAPAMIL [Concomitant]
     Active Substance: VERAPAMIL HYDROCHLORIDE
  14. RIZATRIPTAN BENZOATE. [Concomitant]
     Active Substance: RIZATRIPTAN BENZOATE
  15. METHOTREXATE. [Concomitant]
     Active Substance: METHOTREXATE
  16. ALBUTEROL                          /00139501/ [Concomitant]
     Active Substance: ALBUTEROL
  17. MONTELUKAST [Concomitant]
     Active Substance: MONTELUKAST SODIUM
  18. CETIRIZINE [Concomitant]
     Active Substance: CETIRIZINE HYDROCHLORIDE
  19. HUMIRA [Concomitant]
     Active Substance: ADALIMUMAB
  20. POLYETHYLENE GLYCOL [Concomitant]
     Active Substance: POLYETHYLENE GLYCOLS
  21. AMITRIPTYLINE [Concomitant]
     Active Substance: AMITRIPTYLINE
  22. FOLIC ACID. [Concomitant]
     Active Substance: FOLIC ACID
  23. PREDNISONE. [Concomitant]
     Active Substance: PREDNISONE
  24. SUCRALFATE. [Concomitant]
     Active Substance: SUCRALFATE
  25. VORICONAZOLE. [Concomitant]
     Active Substance: VORICONAZOLE
  26. MIDODRINE [Concomitant]
     Active Substance: MIDODRINE

REACTIONS (1)
  - Deep vein thrombosis [Recovered/Resolved]

NARRATIVE: CASE EVENT DATE: 20200131
